FAERS Safety Report 6746269-X (Version None)
Quarter: 2010Q2

REPORT INFORMATION
  Report Type: 
  Country: None (occurrence: None)
  Receive Date: 20100528
  Receipt Date: 20100408
  Transmission Date: 20101027
  Serious: No
  Sender: FDA-Public Use
  Company Number: US-ASTRAZENECA-2010SE15380

PATIENT
  Age: 71 Year
  Sex: Male

DRUGS (3)
  1. PRILOSEC [Suspect]
     Indication: HIATUS HERNIA
     Route: 048
     Dates: start: 20000101
  2. PRILOSEC [Suspect]
     Indication: BARRETT'S OESOPHAGUS
     Route: 048
     Dates: start: 20000101
  3. PLAVIX [Suspect]
     Route: 048
     Dates: start: 20050101

REACTIONS (1)
  - CARDIAC STRESS TEST ABNORMAL [None]
